FAERS Safety Report 4765956-6 (Version None)
Quarter: 2005Q3

REPORT INFORMATION
  Report Type: 
  Country: None (occurrence: None)
  Receive Date: 20050907
  Receipt Date: 20050907
  Transmission Date: 20060218
  Serious: Yes (Other)
  Sender: FDA-Public Use
  Company Number: None

PATIENT
  Sex: Male
  Weight: 86.1834 kg

DRUGS (1)
  1. BEXTRA [Suspect]
     Indication: MYALGIA
     Dosage: TOOK ONE A DAY
     Dates: start: 20031101

REACTIONS (1)
  - MYOCARDIAL INFARCTION [None]
